FAERS Safety Report 9803875 (Version 2)
Quarter: 2015Q2

REPORT INFORMATION
  Report Type: Spontaneous
  Country: CA (occurrence: CA)
  Receive Date: 20140108
  Receipt Date: 20150612
  Transmission Date: 20150821
  Serious: Yes (Other)
  Sender: FDA-Public Use
  Company Number: CA-SA-2013SA136600

PATIENT
  Age: 68 Year
  Sex: Female

DRUGS (15)
  1. DOCETAXEL. [Suspect]
     Active Substance: DOCETAXEL
     Indication: PRODUCT USED FOR UNKNOWN INDICATION
     Route: 065
  2. PERJETA [Suspect]
     Active Substance: PERTUZUMAB
     Indication: BREAST CANCER METASTATIC
     Route: 065
     Dates: start: 20130821
  3. PANTOLOC [Concomitant]
     Active Substance: PANTOPRAZOLE SODIUM
     Indication: GASTROOESOPHAGEAL REFLUX DISEASE
     Dosage: ACID REFLEX
     Dates: start: 2013
  4. PRESERVISION [Concomitant]
     Active Substance: MINERALS\VITAMINS
     Indication: MACULAR DEGENERATION
  5. ZESTORETIC [Concomitant]
     Active Substance: HYDROCHLOROTHIAZIDE\LISINOPRIL
     Dosage: 20 YEARS AGO
  6. DECADRON [Concomitant]
     Active Substance: DEXAMETHASONE
     Dates: start: 201309
  7. VITAMIN C [Concomitant]
     Active Substance: ASCORBIC ACID
     Dosage: SINCE 20 YEARS AGO
  8. OTHER CHEMOTHERAPEUTICS [Concomitant]
     Active Substance: UNSPECIFIED INGREDIENT
     Dates: start: 200901, end: 200905
  9. HERCEPTIN [Suspect]
     Active Substance: TRASTUZUMAB
     Indication: PRODUCT USED FOR UNKNOWN INDICATION
     Route: 065
  10. VITAMIN B [Concomitant]
     Active Substance: VITAMIN B
     Dosage: SINCE 10 YEARS AGO
  11. CRESTOR [Concomitant]
     Active Substance: ROSUVASTATIN CALCIUM
     Dosage: SINCE 10 YEARS AGO
  12. PAXIL [Concomitant]
     Active Substance: PAROXETINE HYDROCHLORIDE
     Dates: start: 2009
  13. VITAMIN D [Concomitant]
     Active Substance: CHOLECALCIFEROL
     Dates: start: 201309
  14. CLONAZEPAM. [Concomitant]
     Active Substance: CLONAZEPAM
     Dates: start: 2009
  15. CALCIUM [Concomitant]
     Active Substance: CALCIUM
     Dates: start: 201309

REACTIONS (9)
  - Bowel movement irregularity [Unknown]
  - Kidney infection [Unknown]
  - Diarrhoea [Unknown]
  - Red blood cell count decreased [Unknown]
  - Femur fracture [Unknown]
  - Haemorrhoidal haemorrhage [Unknown]
  - Constipation [Unknown]
  - Upper limb fracture [Unknown]
  - Paraesthesia [Unknown]
